FAERS Safety Report 25886437 (Version 1)
Quarter: 2025Q4

REPORT INFORMATION
  Report Type: Spontaneous
  Country: US (occurrence: None)
  Receive Date: 20251005
  Receipt Date: 20251005
  Transmission Date: 20260118
  Serious: Yes (Hospitalization)
  Sender: FDA-CTU
  Company Number: None

PATIENT
  Sex: Male

DRUGS (4)
  1. GAMMAGARD S/D [Suspect]
     Active Substance: HUMAN IMMUNOGLOBULIN G
     Indication: Immunodeficiency common variable
     Dosage: OTHER FREQUENCY : EVERY 2 WEEKS;?
     Route: 042
     Dates: start: 20250107
  2. GAMMAGARD S/D [Suspect]
     Active Substance: HUMAN IMMUNOGLOBULIN G
     Indication: Immunodeficiency common variable
     Dosage: OTHER FREQUENCY : EVERY 2 WEEKS;?
     Route: 042
     Dates: start: 20250107
  3. SODIUM CHLOR SOLN (250ML) [Concomitant]
  4. SOLU-CORTEF ACTOVIAL [Concomitant]

REACTIONS (1)
  - Transient ischaemic attack [None]
